FAERS Safety Report 14011614 (Version 1)
Quarter: 2017Q3

REPORT INFORMATION
  Report Type: Report from Study
  Country: CN (occurrence: CN)
  Receive Date: 20170926
  Receipt Date: 20170926
  Transmission Date: 20171128
  Serious: Yes (Hospitalization)
  Sender: FDA-Public Use
  Company Number: CN-ELI_LILLY_AND_COMPANY-CN201709005758

PATIENT
  Sex: Male

DRUGS (1)
  1. PEMETREXED. [Suspect]
     Active Substance: PEMETREXED
     Indication: LUNG NEOPLASM MALIGNANT
     Dosage: UNK, CYCLICAL
     Route: 042
     Dates: start: 20170824

REACTIONS (2)
  - Skin hyperpigmentation [Unknown]
  - Anal ulcer [Unknown]
